FAERS Safety Report 9000835 (Version 1)
Quarter: 2013Q1

REPORT INFORMATION
  Report Type: Spontaneous
  Country: US (occurrence: None)
  Receive Date: 20130103
  Receipt Date: 20130103
  Transmission Date: 20140127
  Serious: No
  Sender: FDA-Public Use
  Company Number: None

PATIENT
  Age: 51 Year
  Sex: Male
  Weight: 94 kg

DRUGS (11)
  1. FENTANYL [Suspect]
     Indication: ANAESTHESIA
     Route: 042
     Dates: start: 20121214, end: 20121214
  2. FENTANYL [Suspect]
     Indication: SURGERY
     Route: 042
     Dates: start: 20121214, end: 20121214
  3. MIDAZOLAM [Concomitant]
  4. LIDOCAINE [Concomitant]
  5. PROPOFOL [Concomitant]
  6. DEXAMETHASONE [Concomitant]
  7. DIPHENHYDRAMINE [Concomitant]
  8. ONDANSETRON [Concomitant]
  9. CEFAZOLIN [Concomitant]
  10. NALOXONE-NARCAN [Concomitant]
  11. FENTANYL [Concomitant]

REACTIONS (3)
  - Delayed recovery from anaesthesia [None]
  - Anaesthesia reversal [None]
  - Drug level increased [None]
